FAERS Safety Report 8872221 (Version 1)
Quarter: 2012Q4

REPORT INFORMATION
  Report Type: 
  Country: US (occurrence: US)
  Receive Date: 20121026
  Receipt Date: 20121026
  Transmission Date: 20130627
  Serious: No
  Sender: FDA-Public Use
  Company Number: US-AMGEN-USASP2012049309

PATIENT
  Age: 24 Year
  Sex: Female

DRUGS (4)
  1. ENBREL [Suspect]
     Indication: PRODUCT USED FOR UNKNOWN INDICATION
     Dosage: 50 mg, qwk
     Route: 058
  2. MULTI DAY MULTIVITAMIN PLUS IRON [Concomitant]
     Dosage: UNK
  3. TRAMADOL HCL [Concomitant]
     Dosage: 50 mg, UNK
  4. IBUPROFEN [Concomitant]
     Dosage: 400 mg, UNK

REACTIONS (3)
  - Injection site erythema [Recovered/Resolved]
  - Injection site pruritus [Recovered/Resolved]
  - Psoriasis [Unknown]
